FAERS Safety Report 7722667-2 (Version None)
Quarter: 2011Q3

REPORT INFORMATION
  Report Type: 
  Country: None (occurrence: None)
  Receive Date: 20110831
  Receipt Date: 20110822
  Transmission Date: 20111222
  Serious: Yes (Hospitalization, Other)
  Sender: FDA-Public Use
  Company Number: US-RB-020495-11

PATIENT
  Age: 23 Year
  Sex: Male

DRUGS (3)
  1. SUBOXONE [Suspect]
     Indication: DRUG DEPENDENCE
     Route: 060
     Dates: start: 20090101, end: 20110401
  2. SUBOXONE [Suspect]
     Indication: DRUG DEPENDENCE
     Dosage: SUBLINGUAL FILM
     Route: 060
     Dates: start: 20110401, end: 20110801
  3. SUBOXONE [Suspect]
     Dosage: SUBLINGUAL FILM
     Route: 060
     Dates: start: 20110801

REACTIONS (6)
  - DRUG DEPENDENCE [None]
  - UNDERDOSE [None]
  - EUPHORIC MOOD [None]
  - ADVERSE EVENT [None]
  - INTENTIONAL OVERDOSE [None]
  - SUICIDAL IDEATION [None]
